FAERS Safety Report 8831672 (Version 2)
Quarter: 2012Q4

REPORT INFORMATION
  Report Type: 
  Country: US (occurrence: US)
  Receive Date: 20121009
  Receipt Date: 20121228
  Transmission Date: 20130627
  Serious: Yes (Life-Threatening, Hospitalization, Other)
  Sender: FDA-Public Use
  Company Number: US-GENZYME-CLOF-1002336

PATIENT
  Age: 17 Year
  Sex: Male
  Weight: 50.6 kg

DRUGS (15)
  1. CLOLAR [Suspect]
     Indication: LYMPHOCYTIC LEUKAEMIA
     Dosage: UNK mg/m2, UNK
     Route: 042
     Dates: start: 20120516
  2. CLOLAR [Suspect]
     Dosage: 30 mg/m2, qd (Consolidation Days 29-33)
     Route: 065
     Dates: start: 20120802, end: 20120806
  3. CYCLOPHOSPHAMIDE [Suspect]
     Indication: LYMPHOCYTIC LEUKAEMIA
     Dosage: UNK
     Route: 042
     Dates: start: 20120516, end: 20120806
  4. ETOPOSIDE [Suspect]
     Indication: LYMPHOCYTIC LEUKAEMIA
     Dosage: UNK mg, UNK
     Route: 042
     Dates: start: 20120516, end: 20120806
  5. AMPHOTERICINE [Suspect]
     Indication: PRODUCT USED FOR UNKNOWN INDICATION
     Dosage: UNK
     Route: 065
  6. AMBISOME [Concomitant]
     Indication: PRODUCT USED FOR UNKNOWN INDICATION
     Dosage: UNK
     Route: 065
     Dates: start: 20120825
  7. VANCOMYCIN [Concomitant]
     Indication: PRODUCT USED FOR UNKNOWN INDICATION
     Dosage: 1 g, UNK
     Route: 065
  8. CEFEPIME [Concomitant]
     Indication: PRODUCT USED FOR UNKNOWN INDICATION
     Dosage: 2 g, UNK
     Route: 065
  9. TYLENOL [Concomitant]
     Indication: PREMEDICATION
     Dosage: UNK
     Route: 065
  10. OMEPRAZOLE [Concomitant]
     Indication: GASTROOESOPHAGEAL REFLUX DISEASE
     Dosage: 20 mg, UNK
     Route: 048
  11. OMEPRAZOLE [Concomitant]
     Indication: GASTRITIS
  12. SCOPOLAMINE [Concomitant]
     Indication: ABDOMINAL PAIN
     Dosage: 1.5 mg, UNK
     Route: 065
  13. KYTRIL [Concomitant]
     Indication: NAUSEA
     Dosage: UNK
     Route: 065
  14. KYTRIL [Concomitant]
     Indication: VOMITING
  15. HYDROCORTISONE [Concomitant]
     Indication: PREMEDICATION
     Dosage: UNK
     Route: 065

REACTIONS (24)
  - Gastrooesophageal reflux disease [Not Recovered/Not Resolved]
  - Gastritis [Not Recovered/Not Resolved]
  - Hypocalcaemia [Recovered/Resolved]
  - Pancytopenia [Unknown]
  - Weight decreased [Not Recovered/Not Resolved]
  - Hypotension [Unknown]
  - Neutropenia [Unknown]
  - Fatigue [Recovered/Resolved]
  - Abdominal pain [Recovered/Resolved]
  - Stomatitis [Recovered/Resolved]
  - Nausea [Recovered/Resolved]
  - Vomiting [Recovered/Resolved]
  - Diarrhoea [Recovered/Resolved]
  - Pyrexia [Recovered/Resolved]
  - Fungal infection [Not Recovered/Not Resolved]
  - Pain in jaw [Unknown]
  - Micturition urgency [Unknown]
  - Pollakiuria [Unknown]
  - Pelvic fluid collection [Unknown]
  - Decreased appetite [Recovered/Resolved]
  - Blood creatinine increased [Unknown]
  - Chills [Recovered/Resolved]
  - Hypokalaemia [Recovered/Resolved]
  - Hypernatraemia [Recovered/Resolved]
